FAERS Safety Report 7751711-1 (Version None)
Quarter: 2011Q3

REPORT INFORMATION
  Report Type: 
  Country: None (occurrence: None)
  Receive Date: 20110915
  Receipt Date: 20110913
  Transmission Date: 20111222
  Serious: Yes (Other)
  Sender: FDA-Public Use
  Company Number: US-BIOGENIDEC-2011BI031301

PATIENT
  Age: 50 Year
  Sex: Female

DRUGS (7)
  1. LEVOTHYROXINE SODIUM [Concomitant]
     Indication: HYPOTHYROIDISM
     Route: 048
  2. TYSABRI [Suspect]
     Indication: MULTIPLE SCLEROSIS
     Route: 042
     Dates: start: 20071107, end: 20100813
  3. SEROQUEL [Concomitant]
     Indication: BIPOLAR DISORDER
     Route: 048
  4. EFFEXOR [Concomitant]
     Indication: BIPOLAR DISORDER
     Route: 048
  5. LITHIUM [Concomitant]
     Indication: BIPOLAR DISORDER
     Route: 048
  6. TYSABRI [Suspect]
     Route: 042
     Dates: start: 20110804
  7. TOPAMAX [Concomitant]
     Indication: TREMOR
     Route: 048

REACTIONS (2)
  - DRUG DELIVERY DEVICE IMPLANTATION [None]
  - SPINAL FUSION SURGERY [None]
